FAERS Safety Report 17088125 (Version 2)
Quarter: 2019Q4

REPORT INFORMATION
  Report Type: Report from Study
  Country: UA (occurrence: UA)
  Receive Date: 20191128
  Receipt Date: 20191203
  Transmission Date: 20200122
  Serious: Yes (Other)
  Sender: FDA-Public Use
  Company Number: UA-PFIZER INC-2019509439

PATIENT
  Age: 50 Year
  Sex: Female

DRUGS (3)
  1. TRITACE [Suspect]
     Active Substance: RAMIPRIL
     Indication: DIZZINESS
  2. TRITACE [Suspect]
     Active Substance: RAMIPRIL
     Indication: FATIGUE
     Dosage: UNK UNK, QD
     Route: 048
  3. TRITACE [Suspect]
     Active Substance: RAMIPRIL
     Indication: HYPERTENSION

REACTIONS (4)
  - Diarrhoea [Unknown]
  - Dizziness [Unknown]
  - Type 1 diabetes mellitus [Unknown]
  - Dyspepsia [Unknown]
